FAERS Safety Report 23660599 (Version 5)
Quarter: 2025Q1

REPORT INFORMATION
  Report Type: Spontaneous
  Country: US (occurrence: US)
  Receive Date: 20240322
  Receipt Date: 20250217
  Transmission Date: 20250409
  Serious: Yes (Other)
  Sender: AMGEN
  Company Number: US-AMGEN-USASP2024057993

PATIENT
  Sex: Male

DRUGS (2)
  1. OTEZLA [Suspect]
     Active Substance: APREMILAST
     Indication: Psoriatic arthropathy
     Dosage: 30 MILLIGRAM, BID (RX2. TAKE 1 TABLET BY MOUTH TWICE DAILY)
     Route: 048
  2. ATOMOXETINE [Concomitant]
     Active Substance: ATOMOXETINE

REACTIONS (6)
  - Psoriatic arthropathy [Not Recovered/Not Resolved]
  - Product dose omission issue [Unknown]
  - Sensitivity to weather change [Unknown]
  - Stress [Unknown]
  - Therapy non-responder [Unknown]
  - Nausea [Unknown]
